FAERS Safety Report 7780025-9 (Version None)
Quarter: 2011Q3

REPORT INFORMATION
  Report Type: 
  Country: None (occurrence: None)
  Receive Date: 20110927
  Receipt Date: 20110922
  Transmission Date: 20111222
  Serious: Yes (Death, Other)
  Sender: FDA-Public Use
  Company Number: FR-JNJFOC-20110909141

PATIENT
  Sex: Male

DRUGS (3)
  1. DEPAKENE [Concomitant]
     Indication: EPILEPSY
     Route: 065
  2. RISPERDAL CONSTA [Suspect]
     Indication: SCHIZOPHRENIA
     Route: 030
     Dates: start: 20070101
  3. IMOVANE [Concomitant]
     Route: 065

REACTIONS (2)
  - WEIGHT INCREASED [None]
  - SUDDEN DEATH [None]
